FAERS Safety Report 5876890-2 (Version None)
Quarter: 2008Q3

REPORT INFORMATION
  Report Type: 
  Country: None (occurrence: None)
  Receive Date: 20080908
  Receipt Date: 20080825
  Transmission Date: 20090109
  Serious: Yes (Other)
  Sender: FDA-Public Use
  Company Number: 238046J08USA

PATIENT
  Age: 54 Year
  Sex: Female
  Weight: 86.1834 kg

DRUGS (7)
  1. REBIF [Suspect]
     Indication: CONVULSION
     Dosage: 44 MCG, 3 IN 1 WEEKS, SUBCUTANEOUS, 225 MG, 1 IN 1 DAYS
     Route: 058
     Dates: start: 20040716
  2. REBIF [Suspect]
     Indication: MULTIPLE SCLEROSIS
     Dosage: 44 MCG, 3 IN 1 WEEKS, SUBCUTANEOUS, 225 MG, 1 IN 1 DAYS
     Route: 058
     Dates: start: 20040716
  3. NEURONTIN [Concomitant]
  4. REQUIP [Concomitant]
  5. CYMBALTA [Concomitant]
  6. TOPAMAX [Concomitant]
  7. LAMICTAL [Concomitant]

REACTIONS (7)
  - BLOOD FOLATE DECREASED [None]
  - CONDITION AGGRAVATED [None]
  - CONVULSION [None]
  - DRUG DOSE OMISSION [None]
  - OTITIS MEDIA [None]
  - PYREXIA [None]
  - TREATMENT NONCOMPLIANCE [None]
